FAERS Safety Report 4407133-4 (Version None)
Quarter: 2004Q3

REPORT INFORMATION
  Report Type: 
  Country: None (occurrence: None)
  Receive Date: 20040721
  Receipt Date: 20040707
  Transmission Date: 20050211
  Serious: Yes (Hospitalization)
  Sender: FDA-Public Use
  Company Number: 2004-0007235

PATIENT
  Age: 34 Year
  Sex: Male
  Weight: 56.246 kg

DRUGS (7)
  1. VIREAD (TENOFOVIR DISPROXIL FUMARATE) [Suspect]
     Indication: HIV INFECTION
     Dosage: 300 MG, 1 IN 1 D, ORAL
     Route: 048
     Dates: start: 20040413
  2. KALETRA [Suspect]
     Indication: HIV INFECTION
     Dosage: 2 IN 1 D, ORAL
     Route: 048
     Dates: start: 20040413
  3. 3TC (LAMIVUDINE) [Suspect]
     Indication: HIV INFECTION
     Dosage: 1 IN 1 D, ORAL
     Route: 048
     Dates: start: 20040413
  4. AEROSOLIZED PENTAMIDINE [Concomitant]
  5. AZITHROMYCIN [Concomitant]
  6. COMPAZINE [Concomitant]
  7. PREVACID [Concomitant]

REACTIONS (1)
  - BLOOD ALKALINE PHOSPHATASE INCREASED [None]
